FAERS Safety Report 18886025 (Version 2)
Quarter: 2021Q2

REPORT INFORMATION
  Report Type: Report from Study
  Country: US (occurrence: US)
  Receive Date: 20210212
  Receipt Date: 20210427
  Transmission Date: 20210717
  Serious: No
  Sender: FDA-Public Use
  Company Number: US-SA-2021SA042223

PATIENT
  Sex: Male

DRUGS (3)
  1. DUPILUMAB [Suspect]
     Active Substance: DUPILUMAB
     Indication: DERMATITIS ATOPIC
     Dosage: 300 MG, QOW
     Route: 058
     Dates: start: 201906
  2. DUPILUMAB [Suspect]
     Active Substance: DUPILUMAB
     Indication: ILLNESS
     Dosage: 600 MG, 1X
     Route: 058
     Dates: start: 20200101, end: 20200101
  3. DUPILUMAB [Suspect]
     Active Substance: DUPILUMAB
     Dosage: 300 MG, QOW
     Route: 058
     Dates: start: 2020

REACTIONS (5)
  - Skin fissures [Not Recovered/Not Resolved]
  - Pruritus [Unknown]
  - Product use in unapproved indication [Unknown]
  - Dry skin [Unknown]
  - Rash [Not Recovered/Not Resolved]

NARRATIVE: CASE EVENT DATE: 201907
